FAERS Safety Report 4581958-7 (Version None)
Quarter: 2005Q1

REPORT INFORMATION
  Report Type: 
  Country: None (occurrence: None)
  Receive Date: 20050119
  Receipt Date: 20040420
  Transmission Date: 20050727
  Serious: Yes (Hospitalization, Other)
  Sender: FDA-Public Use
  Company Number: US-JNJFOC-20040200314

PATIENT
  Age: 47 Year
  Sex: Female
  Weight: 69.4003 kg

DRUGS (9)
  1. DOXIL [Suspect]
     Indication: OVARIAN CANCER
     Dosage: 68 MG, 1 IN 4 WEEK, TRANSDERMAL
     Route: 062
     Dates: start: 20040115
  2. TYLENOL [Concomitant]
  3. COUMADIN [Concomitant]
  4. COMPAZINE (TABLETS) PROCHLORPERAZINE EDISYLATE [Concomitant]
  5. NORVASC [Concomitant]
  6. INDOMETHACIN [Concomitant]
  7. NYSTATIN POWDER (NYSTATIN) [Concomitant]
  8. SENOKOT [Concomitant]
  9. CIPROFLOXACIN [Concomitant]

REACTIONS (7)
  - ANAEMIA [None]
  - CELLULITIS [None]
  - HYDRONEPHROSIS [None]
  - MALIGNANT NEOPLASM PROGRESSION [None]
  - PLATELET COUNT INCREASED [None]
  - PYREXIA [None]
  - RENAL FAILURE ACUTE [None]
